FAERS Safety Report 5460004-7 (Version None)
Quarter: 2007Q3

REPORT INFORMATION
  Report Type: 
  Country: None (occurrence: None)
  Receive Date: 20070919
  Receipt Date: 20070504
  Transmission Date: 20080115
  Serious: Yes (Hospitalization)
  Sender: FDA-Public Use
  Company Number: US-ASTRAZENECA-2007UW09655

PATIENT
  Age: 15 Year
  Sex: Female
  Weight: 166 kg

DRUGS (3)
  1. SEROQUEL [Suspect]
     Indication: BIPOLAR DISORDER
     Route: 048
     Dates: start: 20050101, end: 20070501
  2. SEROQUEL [Suspect]
     Dosage: BETWEEN 600-800 MG DAILY
     Route: 048
     Dates: start: 20070501
  3. LAMICTAL [Concomitant]

REACTIONS (2)
  - DRUG INEFFECTIVE [None]
  - PSYCHOTIC DISORDER [None]
